FAERS Safety Report 7726605-8 (Version None)
Quarter: 2011Q3

REPORT INFORMATION
  Report Type: 
  Country: None (occurrence: None)
  Receive Date: 20110902
  Receipt Date: 20110822
  Transmission Date: 20111222
  Serious: Yes (Other)
  Sender: FDA-Public Use
  Company Number: CA-ELI_LILLY_AND_COMPANY-CA201108007643

PATIENT
  Age: 84 Year
  Sex: Female

DRUGS (3)
  1. LOSEC                                   /CAN/ [Concomitant]
     Dosage: 20 MG, UNK
  2. CYMBALTA [Suspect]
     Dosage: 30 MG, UNKNOWN
  3. TRAMADOL HYDROCHLORIDE/ACETAMINOPHEN [Concomitant]

REACTIONS (4)
  - ABDOMINAL PAIN [None]
  - NAUSEA [None]
  - BLOOD POTASSIUM DECREASED [None]
  - BLOOD SODIUM DECREASED [None]
